FAERS Safety Report 5810801-0 (Version None)
Quarter: 2008Q3

REPORT INFORMATION
  Report Type: 
  Country: None (occurrence: None)
  Receive Date: 20080709
  Receipt Date: 20080606
  Transmission Date: 20090109
  Serious: Yes (Hospitalization)
  Sender: FDA-Public Use
  Company Number: CHNY2008GB01884

PATIENT
  Sex: Male

DRUGS (12)
  1. LACTULOSE [Suspect]
     Dosage: TRANSPLACENTAL
     Route: 064
  2. OLANZAPINE [Suspect]
     Dosage: TRANSPLACENTAL
     Route: 064
  3. CLONAZEPAM [Suspect]
     Dosage: TRANSPLACENTAL
     Route: 064
  4. FOLIC ACID [Suspect]
     Dosage: TRANSPLACENTAL
  5. METOCLOPRAMIDE [Suspect]
     Dosage: TRANSPLACENTAL
  6. LITHIUM CARBONATE [Suspect]
     Dosage: TRANSPLACENTAL
     Route: 064
  7. RANITIDINE [Suspect]
     Dosage: TRANSPLACENTAL
     Route: 064
  8. SODIUM CITRATE [Suspect]
     Dosage: TRANSPLACENTAL
     Route: 064
  9. THIOPENTAL SODIUM [Suspect]
     Dosage: TRANSPLACENTAL
     Route: 064
  10. SUXAMETHONIUM (SUXAMETHONIUM) [Suspect]
     Dosage: TRANSPLACENTAL
     Route: 064
  11. ISOFLURANE [Suspect]
     Dosage: TRANSPLACENTAL
     Route: 064
  12. HARTMANN'S SOLUTION(CALCIUM CHLORIDE DIHYDRATE, POTASSIUM CHLORIDE, SO [Suspect]
     Dosage: TRANSPLACENTAL
     Route: 064

REACTIONS (9)
  - CAESAREAN SECTION [None]
  - CONVULSION [None]
  - MATERNAL DRUGS AFFECTING FOETUS [None]
  - NUCLEAR MAGNETIC RESONANCE IMAGING BRAIN ABNORMAL [None]
  - PREMATURE BABY [None]
  - PREMATURE RUPTURE OF MEMBRANES [None]
  - PULMONARY HYPERTENSION [None]
  - THERAPEUTIC AGENT TOXICITY [None]
  - TOXIC ENCEPHALOPATHY [None]
